FAERS Safety Report 7849457 (Version 9)
Quarter: 2013Q1

REPORT INFORMATION
  Report Type: Spontaneous
  Country: US (occurrence: US)
  Receive Date: 20110310
  Receipt Date: 20130222
  Transmission Date: 20140127
  Serious: Yes (Hospitalization, Other)
  Sender: FDA-Public Use
  Company Number: PHHY2011US15680

PATIENT
  Age: 70 Year
  Sex: Male
  Weight: 68.03 kg

DRUGS (18)
  1. TASIGNA [Suspect]
     Indication: NEOPLASM MALIGNANT
     Dosage: 400 MG, Q12H
     Route: 048
     Dates: start: 20100816
  2. TASIGNA [Suspect]
     Indication: CHRONIC MYELOID LEUKAEMIA
  3. HYDROCHLOROTHIAZIDE [Suspect]
  4. METFORMIN [Concomitant]
     Indication: DIABETES MELLITUS
     Dosage: 75 MG DAILY
  5. CRESTOR [Concomitant]
     Indication: BLOOD CHOLESTEROL INCREASED
     Dosage: 5 MG DAILY
  6. BENICAR HCT [Concomitant]
     Indication: HYPERTENSION
     Dosage: 40 MG, UNK
  7. GLIMEPIRIDE [Concomitant]
     Indication: DIABETES MELLITUS
     Dosage: 2 MG DAILY
  8. TRIBENZOR [Concomitant]
  9. NEURONTIN [Concomitant]
  10. NUCYNTA [Concomitant]
  11. SPIRIVA [Concomitant]
  12. DUETACT [Concomitant]
  13. GUANFACINE [Concomitant]
  14. DIOVAN [Concomitant]
  15. MUCINEX [Concomitant]
  16. BACTRIM [Concomitant]
  17. TERAZOSIN [Concomitant]
  18. ASA [Concomitant]
     Indication: CARDIAC DISORDER
     Dosage: 8 G, UNK

REACTIONS (16)
  - Fall [Recovered/Resolved]
  - Hyponatraemia [Recovered/Resolved]
  - Chronic obstructive pulmonary disease [Not Recovered/Not Resolved]
  - Cough [Not Recovered/Not Resolved]
  - Carotid artery occlusion [Not Recovered/Not Resolved]
  - Immune system disorder [Not Recovered/Not Resolved]
  - Cardiac failure congestive [Recovered/Resolved]
  - Angina pectoris [Recovered/Resolved]
  - Dyspnoea [Recovered/Resolved]
  - Herpes zoster [Not Recovered/Not Resolved]
  - Loss of consciousness [Recovered/Resolved]
  - Back pain [Recovered/Resolved]
  - Rash [Recovering/Resolving]
  - Cardiovascular insufficiency [Recovering/Resolving]
  - Local swelling [Not Recovered/Not Resolved]
  - Skin ulcer [Not Recovered/Not Resolved]
